FAERS Safety Report 5329184-8 (Version None)
Quarter: 2007Q2

REPORT INFORMATION
  Report Type: 
  Country: None (occurrence: None)
  Receive Date: 20070518
  Receipt Date: 20070508
  Transmission Date: 20071010
  Serious: Yes (Other)
  Sender: FDA-Public Use
  Company Number: AR-PFIZER INC-2007024954

PATIENT
  Sex: Female

DRUGS (2)
  1. LYRICA [Suspect]
     Indication: EPILEPSY
     Dosage: DAILY DOSE:150MG
  2. PHENOBARBITAL TAB [Suspect]
     Indication: EPILEPSY
     Dosage: DAILY DOSE:100MG

REACTIONS (4)
  - BLINDNESS [None]
  - RETINAL DISORDER [None]
  - VISION BLURRED [None]
  - WEIGHT INCREASED [None]
